FAERS Safety Report 9515913 (Version 1)
Quarter: 2013Q3

REPORT INFORMATION
  Report Type: Report from Study
  Country: CA (occurrence: CA)
  Receive Date: 20130911
  Receipt Date: 20130911
  Transmission Date: 20140515
  Serious: Yes (Hospitalization)
  Sender: FDA-Public Use
  Company Number: CA-JNJFOC-20130902524

PATIENT
  Sex: Male
  Weight: 105.4 kg

DRUGS (6)
  1. REMICADE [Suspect]
     Indication: CROHN^S DISEASE
     Dosage: PATIENT WAS SCHEDULED FOR AN INFUSION ON 10-SEP-2013
     Route: 042
     Dates: start: 201004
  2. WARFARIN [Concomitant]
     Route: 065
  3. RANITIDINE [Concomitant]
     Route: 065
  4. LASIX [Concomitant]
     Route: 065
  5. CORTIFOAM [Concomitant]
     Route: 065
  6. SLOW-K [Concomitant]
     Route: 065

REACTIONS (1)
  - Spinal fracture [Unknown]
